FAERS Safety Report 17051217 (Version 1)
Quarter: 2019Q4

REPORT INFORMATION
  Report Type: Report from Study
  Country: ES (occurrence: ES)
  Receive Date: 20191120
  Receipt Date: 20191120
  Transmission Date: 20200122
  Serious: Yes (Other)
  Sender: FDA-Public Use
  Company Number: ES-TEVA-2019-ES-1138631

PATIENT

DRUGS (7)
  1. ADRIAMYCIN [Suspect]
     Active Substance: DOXORUBICIN HYDROCHLORIDE
     Indication: SALVAGE THERAPY
     Route: 065
  2. CYCLOPHOSPHAMIDE. [Suspect]
     Active Substance: CYCLOPHOSPHAMIDE
     Indication: SALVAGE THERAPY
     Route: 065
  3. ETOPOSIDE. [Suspect]
     Active Substance: ETOPOSIDE
     Indication: SALVAGE THERAPY
     Route: 065
  4. THALIDOMIDE [Suspect]
     Active Substance: THALIDOMIDE
     Indication: SALVAGE THERAPY
     Route: 065
  5. BORTEZOMIB. [Suspect]
     Active Substance: BORTEZOMIB
     Indication: SALVAGE THERAPY
     Route: 065
  6. DEXAMETHASONE. [Suspect]
     Active Substance: DEXAMETHASONE
     Indication: SALVAGE THERAPY
     Route: 065
  7. LENALIDOMIDE [Suspect]
     Active Substance: LENALIDOMIDE
     Indication: SALVAGE THERAPY
     Route: 065

REACTIONS (2)
  - Toxicity to various agents [Unknown]
  - Chronic graft versus host disease [Unknown]
